FAERS Safety Report 24876111 (Version 1)
Quarter: 2025Q1

REPORT INFORMATION
  Report Type: Spontaneous
  Country: KR (occurrence: KR)
  Receive Date: 20250123
  Receipt Date: 20250123
  Transmission Date: 20250409
  Serious: Yes (Death)
  Sender: BOEHRINGER INGELHEIM
  Company Number: KR-BoehringerIngelheim-2025-BI-003428

PATIENT
  Sex: Female

DRUGS (5)
  1. OFEV [Suspect]
     Active Substance: NINTEDANIB
     Indication: Idiopathic pulmonary fibrosis
     Dates: start: 20200401
  2. OFEV [Suspect]
     Active Substance: NINTEDANIB
     Dates: start: 20200429
  3. OFEV [Suspect]
     Active Substance: NINTEDANIB
     Dates: start: 20211108
  4. OFEV [Suspect]
     Active Substance: NINTEDANIB
     Dates: start: 20240108
  5. OFEV [Suspect]
     Active Substance: NINTEDANIB
     Dates: start: 20240712

REACTIONS (1)
  - Pneumonia [Fatal]
